FAERS Safety Report 9004449 (Version 1)
Quarter: 2013Q1

REPORT INFORMATION
  Report Type: Spontaneous
  Country: US (occurrence: None)
  Receive Date: 20130103
  Receipt Date: 20130103
  Transmission Date: 20140127
  Serious: No
  Sender: FDA-Public Use
  Company Number: None

PATIENT
  Age: 27 Year
  Sex: Female
  Weight: 113.4 kg

DRUGS (1)
  1. HYDROCODONE/ACETAMINOPHEN [Suspect]
     Dosage: 2 PO PRN 6 HRS PO
     Route: 048
     Dates: start: 20121210, end: 20121222

REACTIONS (4)
  - Dizziness [None]
  - Pain [None]
  - Drug ineffective [None]
  - Product substitution issue [None]
